FAERS Safety Report 9044662 (Version 6)
Quarter: 2013Q2

REPORT INFORMATION
  Report Type: Spontaneous
  Country: US (occurrence: US)
  Receive Date: 20130130
  Receipt Date: 20130424
  Transmission Date: 20140414
  Serious: No
  Sender: FDA-Public Use
  Company Number: US-VERTEX PHARMACEUTICALS INC.-2013-001315

PATIENT
  Age: 37 Year
  Sex: Male
  Weight: 95 kg

DRUGS (3)
  1. INCIVEK [Suspect]
     Indication: HEPATITIS C
     Dosage: 750 MG, TID
     Route: 048
     Dates: start: 20130105, end: 20130404
  2. RIBAVIRIN [Suspect]
     Indication: HEPATITIS C
     Dosage: 600 MG, BID
     Route: 048
     Dates: start: 20130105
  3. PEGASYS [Suspect]
     Indication: HEPATITIS C
     Dosage: 180 ?G, QW
     Route: 058
     Dates: start: 20130105

REACTIONS (20)
  - Dyspnoea [Not Recovered/Not Resolved]
  - Depressed mood [Not Recovered/Not Resolved]
  - Hypoaesthesia [Not Recovered/Not Resolved]
  - Epistaxis [Recovered/Resolved]
  - Abdominal distension [Not Recovered/Not Resolved]
  - Pyrexia [Not Recovered/Not Resolved]
  - Pain [Not Recovered/Not Resolved]
  - Decreased appetite [Not Recovered/Not Resolved]
  - Inappropriate schedule of drug administration [Recovered/Resolved]
  - Lethargy [Not Recovered/Not Resolved]
  - Fatigue [Not Recovered/Not Resolved]
  - Anaemia [Not Recovered/Not Resolved]
  - Platelet count decreased [Not Recovered/Not Resolved]
  - Haematochezia [Recovered/Resolved]
  - Haemorrhoids [Recovered/Resolved]
  - Diarrhoea [Recovered/Resolved]
  - Pruritus generalised [Recovered/Resolved]
  - Vomiting [Not Recovered/Not Resolved]
  - Nausea [Not Recovered/Not Resolved]
  - Dysgeusia [Not Recovered/Not Resolved]
